FAERS Safety Report 23377925 (Version 1)
Quarter: 2024Q1

REPORT INFORMATION
  Report Type: Spontaneous
  Country: CA (occurrence: None)
  Receive Date: 20240105
  Receipt Date: 20240105
  Transmission Date: 20240410
  Serious: No
  Sender: FDA-Public Use
  Company Number: None

PATIENT
  Age: 44 Year
  Sex: Female
  Weight: 65.25 kg

DRUGS (4)
  1. AJOVY [Suspect]
     Active Substance: FREMANEZUMAB-VFRM
     Indication: Migraine
     Dates: start: 20230112
  2. GABAPENTIN [Concomitant]
     Active Substance: GABAPENTIN
  3. MAGNESIUM [Concomitant]
     Active Substance: MAGNESIUM
  4. VITAMIN D [Concomitant]
     Active Substance: VITAMIN D NOS

REACTIONS (5)
  - Chest pain [None]
  - Back pain [None]
  - Agitation [None]
  - Muscle tightness [None]
  - Discomfort [None]

NARRATIVE: CASE EVENT DATE: 20231222
